FAERS Safety Report 14901409 (Version 2)
Quarter: 2018Q3

REPORT INFORMATION
  Report Type: Spontaneous
  Country: PL (occurrence: PL)
  Receive Date: 20180516
  Receipt Date: 20180716
  Transmission Date: 20181010
  Serious: Yes (Death, Hospitalization, Other)
  Sender: FDA-Public Use
  Company Number: PL-TEVA-2018-PL-892677

PATIENT
  Sex: Male
  Weight: 7 kg

DRUGS (4)
  1. FLUDARABINE [Suspect]
     Active Substance: FLUDARABINE PHOSPHATE
     Indication: BONE MARROW CONDITIONING REGIMEN
     Dosage: 12.3 MILLIGRAM DAILY;
     Route: 042
     Dates: start: 20170913, end: 20170917
  2. BUSILVEX [Suspect]
     Active Substance: BUSULFAN
     Indication: BONE MARROW CONDITIONING REGIMEN
     Dosage: 33.2 MILLIGRAM DAILY;
     Route: 042
     Dates: start: 20170913, end: 20170916
  3. MYCOPHENOLATE MOFETIL. [Concomitant]
     Active Substance: MYCOPHENOLATE MOFETIL
     Indication: PROPHYLAXIS AGAINST GRAFT VERSUS HOST DISEASE
     Route: 048
     Dates: start: 20170920, end: 20171113
  4. CICLOSPORIN [Concomitant]
     Active Substance: CYCLOSPORINE
     Indication: PROPHYLAXIS AGAINST GRAFT VERSUS HOST DISEASE
     Route: 048
     Dates: start: 20170918, end: 20171113

REACTIONS (5)
  - Pneumonia mycoplasmal [Fatal]
  - Respiratory failure [Fatal]
  - Decreased activity [Fatal]
  - Diarrhoea [Fatal]
  - Oxygen consumption decreased [Fatal]

NARRATIVE: CASE EVENT DATE: 20171114
